FAERS Safety Report 5767773-7 (Version None)
Quarter: 2008Q2

REPORT INFORMATION
  Report Type: 
  Country: None (occurrence: None)
  Receive Date: 20080612
  Receipt Date: 20080531
  Transmission Date: 20081010
  Serious: Yes (Other)
  Sender: FDA-Public Use
  Company Number: US-PFIZER INC-2008027946

PATIENT
  Sex: Female
  Weight: 68 kg

DRUGS (4)
  1. CHANTIX [Suspect]
     Indication: SMOKING CESSATION THERAPY
     Route: 048
     Dates: start: 20080205, end: 20080404
  2. DEPAKOTE [Concomitant]
     Dosage: DAILY DOSE:500MG-TEXT:QD
  3. ATIVAN [Concomitant]
     Indication: INSOMNIA
     Dosage: DAILY DOSE:4MG-TEXT:EVERY BEDTIME
  4. RESTORIL [Concomitant]

REACTIONS (6)
  - DYSPHAGIA [None]
  - EMOTIONAL DISORDER [None]
  - JOINT INJURY [None]
  - PHARYNGEAL OEDEMA [None]
  - ROAD TRAFFIC ACCIDENT [None]
  - VIRAL UPPER RESPIRATORY TRACT INFECTION [None]
